FAERS Safety Report 20643962 (Version 3)
Quarter: 2022Q2

REPORT INFORMATION
  Report Type: Spontaneous
  Country: US (occurrence: US)
  Receive Date: 20220328
  Receipt Date: 20220622
  Transmission Date: 20220720
  Serious: Yes (Other)
  Sender: FDA-Public Use
  Company Number: US-PFIZER INC-202200427003

PATIENT
  Age: 67 Year
  Sex: Female
  Weight: 83.91 kg

DRUGS (2)
  1. PREMARIN [Suspect]
     Active Substance: ESTROGENS, CONJUGATED
     Indication: Vulvovaginal dryness
     Dosage: 0.5 G, 1X/DAY
     Route: 067
  2. PREMARIN [Suspect]
     Active Substance: ESTROGENS, CONJUGATED
     Dosage: 1 GM PER VAGINA QHS- VAGINAL/AT BEDTIME
     Route: 067

REACTIONS (4)
  - Rotator cuff syndrome [Unknown]
  - Off label use [Unknown]
  - Poor quality product administered [Unknown]
  - Product lot number issue [Unknown]
